FAERS Safety Report 7716153-3 (Version None)
Quarter: 2011Q3

REPORT INFORMATION
  Report Type: 
  Country: None (occurrence: None)
  Receive Date: 20110823
  Receipt Date: 20110808
  Transmission Date: 20111222
  Serious: Yes (Disabling)
  Sender: FDA-Public Use
  Company Number: 2011MA011875

PATIENT
  Age: 69 Year
  Sex: Male

DRUGS (7)
  1. NAPROXEN [Suspect]
     Indication: ARTHRITIS
     Dosage: 250 MG;BID;PO
     Route: 048
     Dates: start: 20110722, end: 20110723
  2. CLOPIDOGREL [Concomitant]
  3. SIMAVASTATIN [Concomitant]
  4. LOSARTAN [Concomitant]
  5. BENDROFLUMETHIAZIDE [Concomitant]
  6. RAMIPRIL [Concomitant]
  7. DOXAZOSIN MESYLATE [Concomitant]

REACTIONS (1)
  - SWOLLEN TONGUE [None]
